FAERS Safety Report 7611862-9 (Version None)
Quarter: 2011Q3

REPORT INFORMATION
  Report Type: 
  Country: None (occurrence: None)
  Receive Date: 20110715
  Receipt Date: 20110712
  Transmission Date: 20111222
  Serious: Yes (Life-Threatening, Hospitalization, Other)
  Sender: FDA-Public Use
  Company Number: US-GILEAD-2011-0040802

PATIENT
  Age: 45 Year
  Sex: Male

DRUGS (4)
  1. VITAMIN D [Concomitant]
  2. VALTREX [Concomitant]
  3. ATRIPLA [Suspect]
     Indication: HIV INFECTION
     Route: 048
  4. PREGABALIN [Concomitant]

REACTIONS (6)
  - POLYDIPSIA PSYCHOGENIC [None]
  - RHABDOMYOLYSIS [None]
  - SCHIZOAFFECTIVE DISORDER [None]
  - HYPONATRAEMIA [None]
  - INAPPROPRIATE ANTIDIURETIC HORMONE SECRETION [None]
  - RENAL FAILURE ACUTE [None]
